FAERS Safety Report 8544588-8 (Version None)
Quarter: 2012Q3

REPORT INFORMATION
  Report Type: 
  Country: None (occurrence: None)
  Receive Date: 20120727
  Receipt Date: 20120719
  Transmission Date: 20120928
  Serious: Yes (Hospitalization)
  Sender: FDA-Public Use
  Company Number: JP-PFIZER INC-2012180060

PATIENT
  Age: 53 Year
  Sex: Male
  Weight: 62 kg

DRUGS (5)
  1. IRINOTECAN HYDROCHLORIDE [Suspect]
     Indication: PANCREATIC CARCINOMA
     Dosage: 313 MG, CYCLIC ONCE IN 2WEEKS
     Route: 041
     Dates: start: 20120705, end: 20120705
  2. OXALIPLATIN [Suspect]
     Indication: PANCREATIC CARCINOMA
     Dosage: 148 MG, CYCLIC ONCE IN 2WEEKS
     Route: 041
     Dates: start: 20120705, end: 20120705
  3. FLUOROURACIL [Suspect]
     Indication: PANCREATIC CARCINOMA
     Dosage: 696 MG, CYCLIC ONCE IN 2WEEKS
     Route: 040
     Dates: start: 20120705, end: 20120705
  4. LEVOLEUCOVORIN CALCIUM [Suspect]
     Indication: PANCREATIC CARCINOMA
     Dosage: 348 MG, CYCLIC ONCE IN 2WEEKS
     Route: 041
     Dates: start: 20120705, end: 20120705
  5. FLUOROURACIL [Suspect]
     Dosage: 4176 MG, CYCLIC, ONCE IN 2WEEKS
     Route: 041
     Dates: start: 20120705, end: 20120707

REACTIONS (3)
  - ENTEROCOLITIS [None]
  - DIARRHOEA [None]
  - FEBRILE NEUTROPENIA [None]
